FAERS Safety Report 11491499 (Version 1)
Quarter: 2015Q3

REPORT INFORMATION
  Report Type: Spontaneous
  Country: AU (occurrence: AU)
  Receive Date: 20150910
  Receipt Date: 20150910
  Transmission Date: 20151125
  Serious: Yes (Hospitalization)
  Sender: FDA-Public Use
  Company Number: AU-BAYER-2015-415816

PATIENT
  Age: 69 Year
  Sex: Female

DRUGS (1)
  1. GADOVIST [Suspect]
     Active Substance: GADOBUTROL
     Indication: IMAGING PROCEDURE
     Dosage: UNK DF, ONCE
     Route: 037
     Dates: start: 20150903, end: 20150903

REACTIONS (5)
  - Seizure like phenomena [None]
  - Confusional state [None]
  - Irritability [None]
  - Incorrect route of drug administration [None]
  - Agitation [None]

NARRATIVE: CASE EVENT DATE: 20150903
